FAERS Safety Report 7902865-5 (Version None)
Quarter: 2011Q4

REPORT INFORMATION
  Report Type: 
  Country: None (occurrence: None)
  Receive Date: 20111104
  Receipt Date: 20111028
  Transmission Date: 20120403
  Serious: Yes (Hospitalization)
  Sender: FDA-Public Use
  Company Number: 2011SP044391

PATIENT
  Age: 24 Year
  Sex: Male
  Weight: 57 kg

DRUGS (19)
  1. METHYL-F (DL-METHYLEPHEDRINE HYDROCHLORIDE) (METHYLEPHEDRINE HYDROCHLO [Suspect]
     Indication: RHINITIS
     Dosage: 0.33 GM;TID;PO
     Route: 048
     Dates: start: 20101027, end: 20101027
  2. METHYL-F (DL-METHYLEPHEDRINE HYDROCHLORIDE) (METHYLEPHEDRINE HYDROCHLO [Suspect]
     Indication: BRONCHITIS
     Dosage: 0.33 GM;TID;PO
     Route: 048
     Dates: start: 20101027, end: 20101027
  3. METHYL-F (DL-METHYLEPHEDRINE HYDROCHLORIDE) (METHYLEPHEDRINE HYDROCHLO [Suspect]
     Indication: UPPER RESPIRATORY TRACT INFLAMMATION
     Dosage: 0.33 GM;TID;PO
     Route: 048
     Dates: start: 20101027, end: 20101027
  4. METHISTA [Concomitant]
  5. LEVOFLOXACIN [Suspect]
     Indication: UPPER RESPIRATORY TRACT INFLAMMATION
     Dosage: 500 MG;QD;PO
     Route: 048
     Dates: start: 20101027, end: 20101027
  6. LEVOFLOXACIN [Suspect]
     Indication: RHINITIS
     Dosage: 500 MG;QD;PO
     Route: 048
     Dates: start: 20101027, end: 20101027
  7. LEVOFLOXACIN [Suspect]
     Indication: BRONCHITIS
     Dosage: 500 MG;QD;PO
     Route: 048
     Dates: start: 20101027, end: 20101027
  8. HOKUNALIN TAPE (TULOBUTEROL) [Concomitant]
  9. LOXIPAIN (LOXOPROFEN SODIUM) [Suspect]
     Indication: BRONCHITIS
     Dosage: 60 MG;TID;PO
     Route: 048
     Dates: start: 20101027, end: 20101027
  10. LOXIPAIN (LOXOPROFEN SODIUM) [Suspect]
     Indication: RHINITIS
     Dosage: 60 MG;TID;PO
     Route: 048
     Dates: start: 20101027, end: 20101027
  11. LOXIPAIN (LOXOPROFEN SODIUM) [Suspect]
     Indication: UPPER RESPIRATORY TRACT INFLAMMATION
     Dosage: 60 MG;TID;PO
     Route: 048
     Dates: start: 20101027, end: 20101027
  12. HUSTAGIN (PLANTAGO MAJOR) [Suspect]
     Indication: RHINITIS
     Dosage: 0.66 GM;TID;PO
     Route: 048
     Dates: start: 20101027, end: 20101027
  13. HUSTAGIN (PLANTAGO MAJOR) [Suspect]
     Indication: UPPER RESPIRATORY TRACT INFLAMMATION
     Dosage: 0.66 GM;TID;PO
     Route: 048
     Dates: start: 20101027, end: 20101027
  14. HUSTAGIN (PLANTAGO MAJOR) [Suspect]
     Indication: BRONCHITIS
     Dosage: 0.66 GM;TID;PO
     Route: 048
     Dates: start: 20101027, end: 20101027
  15. SELPAS [Concomitant]
  16. HOFVAN [Concomitant]
  17. CLARITIN [Suspect]
     Indication: RHINITIS
     Dosage: 10 MG;QD;PO
     Route: 048
     Dates: start: 20101027, end: 20101027
  18. CLARITIN [Suspect]
     Indication: BRONCHITIS
     Dosage: 10 MG;QD;PO
     Route: 048
     Dates: start: 20101027, end: 20101027
  19. CLARITIN [Suspect]
     Indication: UPPER RESPIRATORY TRACT INFLAMMATION
     Dosage: 10 MG;QD;PO
     Route: 048
     Dates: start: 20101027, end: 20101027

REACTIONS (1)
  - ANAPHYLACTOID REACTION [None]
